FAERS Safety Report 5494654-9 (Version None)
Quarter: 2007Q4

REPORT INFORMATION
  Report Type: 
  Country: None (occurrence: None)
  Receive Date: 20071023
  Receipt Date: 20071023
  Transmission Date: 20080405
  Serious: Yes (Other)
  Sender: FDA-Public Use
  Company Number: None

PATIENT
  Age: 52 Year
  Sex: Female
  Weight: 56.6996 kg

DRUGS (1)
  1. AMBIEN [Suspect]
     Indication: INSOMNIA
     Dosage: 5MG ONCE A DAY,NIGHT PO
     Route: 048
     Dates: start: 20010110, end: 20071001

REACTIONS (9)
  - ABNORMAL BEHAVIOUR [None]
  - AMNESIA [None]
  - ANXIETY [None]
  - DEPRESSION [None]
  - DRUG DEPENDENCE [None]
  - FEELING ABNORMAL [None]
  - LOSS OF EMPLOYMENT [None]
  - PANIC ATTACK [None]
  - PERSONALITY CHANGE [None]
